FAERS Safety Report 7914169-5 (Version None)
Quarter: 2011Q4

REPORT INFORMATION
  Report Type: 
  Country: None (occurrence: None)
  Receive Date: 20111115
  Receipt Date: 20111115
  Transmission Date: 20120403
  Serious: Yes (Other)
  Sender: FDA-Public Use
  Company Number: None

PATIENT
  Age: 51 Year
  Sex: Female
  Weight: 63 kg

DRUGS (1)
  1. CVS EXTRA STRENGTH PAIN RELIEF P [Suspect]
     Indication: HEADACHE
     Dosage: 2 TABLETS TAKEN
     Dates: start: 20111114, end: 20111114

REACTIONS (1)
  - CONVULSION [None]
